FAERS Safety Report 8400105-4 (Version None)
Quarter: 2012Q2

REPORT INFORMATION
  Report Type: 
  Country: None (occurrence: None)
  Receive Date: 20120531
  Receipt Date: 20120518
  Transmission Date: 20120825
  Serious: Yes (Hospitalization, Other)
  Sender: FDA-Public Use
  Company Number: FR-CELGENEUS-056-21880-12022642

PATIENT
  Sex: Male
  Weight: 66 kg

DRUGS (5)
  1. REVLIMID [Suspect]
     Indication: MULTIPLE MYELOMA
     Route: 048
     Dates: start: 20100722, end: 20120221
  2. MEDROL [Concomitant]
     Route: 048
     Dates: start: 20100702
  3. REVLIMID [Suspect]
     Route: 048
  4. DEXAMETHASONE [Concomitant]
     Indication: MULTIPLE MYELOMA
     Route: 065
  5. ASPIRIN [Concomitant]
     Indication: THROMBOSIS PROPHYLAXIS
     Dosage: 75 MILLIGRAM
     Route: 065
     Dates: start: 20100702

REACTIONS (3)
  - ATRIAL FLUTTER [None]
  - BRONCHITIS VIRAL [None]
  - ATRIAL FIBRILLATION [None]
